FAERS Safety Report 12297943 (Version 2)
Quarter: 2016Q2

REPORT INFORMATION
  Report Type: Spontaneous
  Country: US (occurrence: US)
  Receive Date: 20160422
  Receipt Date: 20160616
  Transmission Date: 20160815
  Serious: Yes (Other)
  Sender: FDA-Public Use
  Company Number: US-PFIZER INC-2016224940

PATIENT
  Age: 42 Year
  Sex: Female

DRUGS (1)
  1. CHANTIX [Suspect]
     Active Substance: VARENICLINE TARTRATE
     Indication: SMOKING CESSATION THERAPY
     Dosage: 1 MG, (TWICE OR EVERY OTHER DAY)
     Route: 048
     Dates: start: 20160326

REACTIONS (9)
  - Headache [Recovered/Resolved]
  - Road traffic accident [Not Recovered/Not Resolved]
  - Drug dose omission [Recovered/Resolved]
  - Hypoaesthesia oral [Not Recovered/Not Resolved]
  - Concussion [Recovered/Resolved]
  - Lip disorder [Not Recovered/Not Resolved]
  - Nausea [Recovered/Resolved]
  - Oral pain [Not Recovered/Not Resolved]
  - Abdominal discomfort [Recovered/Resolved]

NARRATIVE: CASE EVENT DATE: 2016
